FAERS Safety Report 8969307 (Version 1)
Quarter: 2012Q4

REPORT INFORMATION
  Report Type: 
  Country: FR (occurrence: FR)
  Receive Date: 20121218
  Receipt Date: 20121218
  Transmission Date: 20130627
  Serious: Yes (Hospitalization, Other)
  Sender: FDA-Public Use
  Company Number: FR-009507513-1103FRA00123

PATIENT
  Age: 58 Year
  Sex: Female

DRUGS (12)
  1. JANUMET [Suspect]
     Indication: INSULIN-REQUIRING TYPE 2 DIABETES MELLITUS
     Dosage: 50mg-1000 mg/bid
     Route: 048
     Dates: start: 20100906, end: 20100911
  2. VICTOZA [Suspect]
     Indication: INSULIN-REQUIRING TYPE 2 DIABETES MELLITUS
     Route: 058
     Dates: start: 20100824, end: 20100905
  3. ACTONEL [Concomitant]
     Dosage: 35 mg, QW
     Route: 048
     Dates: end: 20100911
  4. LYRICA [Concomitant]
     Indication: DIABETIC NEUROPATHY
     Dosage: 50 mg, qd
     Route: 048
     Dates: start: 201005
  5. LANTUS [Concomitant]
     Indication: INSULIN-REQUIRING TYPE 2 DIABETES MELLITUS
     Dosage: 40 IU, qd
     Route: 058
     Dates: start: 20100906
  6. LANTUS [Concomitant]
     Dates: end: 20100823
  7. MK-9378 [Concomitant]
     Indication: INSULIN-REQUIRING TYPE 2 DIABETES MELLITUS
     Dosage: 1000 mg, bid
     Route: 048
     Dates: start: 20100824, end: 20100911
  8. MK-9351 [Concomitant]
     Indication: DYSLIPIDAEMIA
     Dosage: 160 mg, qd
     Route: 048
     Dates: end: 20100911
  9. COAPROVEL [Concomitant]
     Indication: HYPERTENSION
     Dosage: 150 mg/12.5
     Route: 048
     Dates: end: 20100911
  10. LEVOTHYROX [Concomitant]
     Indication: HYPOTHYROIDISM
     Dosage: 75 ?g, qd
     Route: 048
  11. DAONIL [Concomitant]
     Dates: end: 20100823
  12. AVANDAMET [Concomitant]
     Dates: end: 20100823

REACTIONS (7)
  - Amylase increased [Recovered/Resolved]
  - Lipase increased [Recovered/Resolved]
  - Renal failure acute [Recovered/Resolved]
  - Abdominal pain [Recovered/Resolved]
  - Pyrexia [Recovered/Resolved]
  - Diarrhoea [Recovered/Resolved]
  - Vomiting [Recovered/Resolved]
